FAERS Safety Report 4469185-5 (Version None)
Quarter: 2004Q4

REPORT INFORMATION
  Report Type: 
  Country: None (occurrence: None)
  Receive Date: 20041005
  Receipt Date: 20041005
  Transmission Date: 20050328
  Serious: Yes (Other)
  Sender: FDA-Public Use
  Company Number: None

PATIENT
  Age: 39 Year
  Sex: Male
  Weight: 95.2554 kg

DRUGS (1)
  1. INH [Suspect]
     Indication: TUBERCULOSIS
     Dates: start: 20040210, end: 20040928

REACTIONS (2)
  - CONTRAINDICATION TO MEDICAL TREATMENT [None]
  - LIVER FUNCTION TEST ABNORMAL [None]
